FAERS Safety Report 14666576 (Version 1)
Quarter: 2018Q1

REPORT INFORMATION
  Report Type: Spontaneous
  Country: US (occurrence: US)
  Receive Date: 20180322
  Receipt Date: 20180322
  Transmission Date: 20180509
  Serious: No
  Sender: FDA-Public Use
  Company Number: US-BIOGEN-2015BI046755

PATIENT
  Age: 22 Year
  Sex: Female

DRUGS (1)
  1. PLEGRIDY [Suspect]
     Active Substance: PEGINTERFERON BETA-1A
     Indication: MULTIPLE SCLEROSIS
     Route: 058
     Dates: start: 20150303

REACTIONS (5)
  - Peripheral swelling [Not Recovered/Not Resolved]
  - Injection site bruising [Not Recovered/Not Resolved]
  - Pruritus [Not Recovered/Not Resolved]
  - Device malfunction [Unknown]
  - Injection site reaction [Not Recovered/Not Resolved]

NARRATIVE: CASE EVENT DATE: 20150331
